FAERS Safety Report 17686421 (Version 1)
Quarter: 2020Q2

REPORT INFORMATION
  Report Type: Report from Study
  Country: PL (occurrence: PL)
  Receive Date: 20200420
  Receipt Date: 20200420
  Transmission Date: 20200714
  Serious: Yes (Other)
  Sender: FDA-Public Use
  Company Number: PL-EXELIXIS-XL18420028895

PATIENT
  Age: 61 Year
  Sex: Male
  Weight: 90 kg

DRUGS (7)
  1. IPILIMUMAB [Suspect]
     Active Substance: IPILIMUMAB
     Indication: RENAL CELL CARCINOMA
     Dosage: 1 MG, Q3WEEKS X4 DOSES
     Route: 042
  2. TERTENSAM [Concomitant]
  3. MILURIT [Concomitant]
     Active Substance: ALLOPURINOL
  4. NIVOLUMAB [Suspect]
     Active Substance: NIVOLUMAB
     Indication: RENAL CELL CARCINOMA
     Dosage: 3 MG, Q3WEEKS X 4 DOSES
     Route: 042
  5. POLTRAM [Concomitant]
     Active Substance: TRAMADOL HYDROCHLORIDE
  6. XL184 [Suspect]
     Active Substance: CABOZANTINIB
     Indication: RENAL CELL CARCINOMA
     Dosage: 40 MG, QD
     Route: 048
     Dates: start: 20200324
  7. RISTFOR [Concomitant]
     Active Substance: METFORMIN HYDROCHLORIDE\SITAGLIPTIN PHOSPHATE

REACTIONS (1)
  - Lipase increased [Unknown]

NARRATIVE: CASE EVENT DATE: 20200408
